FAERS Safety Report 17681338 (Version 1)
Quarter: 2020Q2

REPORT INFORMATION
  Report Type: Report from Study
  Country: US (occurrence: US)
  Receive Date: 20200417
  Receipt Date: 20200417
  Transmission Date: 20200714
  Serious: Yes (Hospitalization)
  Sender: FDA-Public Use
  Company Number: US-SHIRE-US202013662

PATIENT
  Sex: Male

DRUGS (2)
  1. IDURSULFASE [Suspect]
     Active Substance: IDURSULFASE
     Indication: MUCOPOLYSACCHARIDOSIS II
     Dosage: UNK
     Route: 042
     Dates: start: 20060919
  2. IDURSULFASE [Suspect]
     Active Substance: IDURSULFASE
     Dosage: 0.56 MILLIGRAM/KILOGRAM, 1X/WEEK
     Route: 042
     Dates: start: 20090604

REACTIONS (1)
  - Peripheral swelling [Unknown]
